FAERS Safety Report 4312193-5 (Version None)
Quarter: 2004Q1

REPORT INFORMATION
  Report Type: 
  Country: None (occurrence: None)
  Receive Date: 20040303
  Receipt Date: 20040219
  Transmission Date: 20041129
  Serious: Yes (Other)
  Sender: FDA-Public Use
  Company Number: 2004009596

PATIENT
  Age: 75 Year
  Sex: Male

DRUGS (2)
  1. VIAGRA [Suspect]
     Indication: ERECTILE DYSFUNCTION
     Dosage: 50 MG (PRN), ORAL
     Route: 048
  2. FINASTERIDE [Concomitant]

REACTIONS (6)
  - ANURIA [None]
  - BLADDER SPASM [None]
  - MICTURITION DISORDER [None]
  - NAUSEA [None]
  - SUPRAPUBIC PAIN [None]
  - VOMITING [None]
